FAERS Safety Report 23351587 (Version 1)
Quarter: 2023Q4

REPORT INFORMATION
  Report Type: Spontaneous
  Country: US (occurrence: None)
  Receive Date: 20231229
  Receipt Date: 20231229
  Transmission Date: 20240110
  Serious: Yes (Other)
  Sender: FDA-Public Use
  Company Number: 2023A294199

PATIENT

DRUGS (7)
  1. METOPROLOL [Suspect]
     Active Substance: METOPROLOL
     Indication: Blood pressure measurement
  2. OMEPRAZOLE [Suspect]
     Active Substance: OMEPRAZOLE
  3. LETROZOLE [Suspect]
     Active Substance: LETROZOLE
  4. ELIQUIS [Suspect]
     Active Substance: APIXABAN
     Indication: Blood thrombin
  5. IBRANCE [Suspect]
     Active Substance: PALBOCICLIB
     Indication: Breast cancer stage IV
  6. ZOLPIDEM [Concomitant]
     Active Substance: ZOLPIDEM TARTRATE
  7. VANCOMYCIN HYDROCHLORIDE [Concomitant]
     Active Substance: VANCOMYCIN HYDROCHLORIDE

REACTIONS (4)
  - Spinal stenosis [Unknown]
  - Hernia [Unknown]
  - Ulcer [Unknown]
  - Diarrhoea [Unknown]
